FAERS Safety Report 13343477 (Version 2)
Quarter: 2017Q1

REPORT INFORMATION
  Report Type: Spontaneous
  Country: US (occurrence: US)
  Receive Date: 20170316
  Receipt Date: 20170331
  Transmission Date: 20170428
  Serious: Yes (Hospitalization, Other)
  Sender: FDA-Public Use
  Company Number: US-SAOL THERAPEUTICS-2017SAO00497

PATIENT
  Age: 37 Year
  Sex: Male
  Weight: 92.97 kg

DRUGS (7)
  1. FENTANYL. [Suspect]
     Active Substance: FENTANYL
     Dosage: 4506 ?G, \DAY
     Route: 037
  2. FENTANYL. [Suspect]
     Active Substance: FENTANYL
     Dosage: 4307 ?G, \DAY
     Route: 037
  3. COMPOUNDED BACLOFEN [Suspect]
     Active Substance: BACLOFEN
     Indication: SPINAL PAIN
  4. COMPOUNDED BACLOFEN [Suspect]
     Active Substance: BACLOFEN
     Indication: BACK PAIN
     Dosage: 360.5 ?G, \DAY
     Route: 037
  5. BUPIVACAINE. [Suspect]
     Active Substance: BUPIVACAINE
     Dosage: 8.614 MG, \DAY
     Route: 037
  6. BUPIVACAINE. [Suspect]
     Active Substance: BUPIVACAINE
     Dosage: 9.012 MG, \DAY
     Route: 037
  7. BACLOFEN. [Suspect]
     Active Substance: BACLOFEN
     Route: 048

REACTIONS (8)
  - Loss of consciousness [Recovered/Resolved]
  - Confusional state [Unknown]
  - Administration site scar [Unknown]
  - Muscle spasms [Unknown]
  - Device occlusion [Unknown]
  - Off label use [Unknown]
  - Incorrect route of drug administration [Unknown]
  - Somnolence [Unknown]

NARRATIVE: CASE EVENT DATE: 20170309
